FAERS Safety Report 5378386-3 (Version None)
Quarter: 2007Q2

REPORT INFORMATION
  Report Type: 
  Country: None (occurrence: None)
  Receive Date: 20070530
  Receipt Date: 20070219
  Transmission Date: 20071010
  Serious: No
  Sender: FDA-Public Use
  Company Number: 2007PV030338

PATIENT
  Age: 56 Year
  Sex: Female
  Weight: 104.3273 kg

DRUGS (5)
  1. BYETTA [Suspect]
     Indication: DIABETES MELLITUS NON-INSULIN-DEPENDENT
     Dosage: 5 MCG; BID; SC; 10 MCG; BID; SC; 5 MCG; BID; SC
     Route: 058
     Dates: start: 20061201, end: 20070101
  2. BYETTA [Suspect]
     Indication: DIABETES MELLITUS NON-INSULIN-DEPENDENT
     Dosage: 5 MCG; BID; SC; 10 MCG; BID; SC; 5 MCG; BID; SC
     Route: 058
     Dates: start: 20070101, end: 20070114
  3. BYETTA [Suspect]
     Indication: DIABETES MELLITUS NON-INSULIN-DEPENDENT
     Dosage: 5 MCG; BID; SC; 10 MCG; BID; SC; 5 MCG; BID; SC
     Route: 058
     Dates: start: 20070117
  4. BYETTA [Suspect]
  5. HYDROCODONE BITARTRATE [Concomitant]

REACTIONS (6)
  - DECREASED APPETITE [None]
  - INJECTION SITE BRUISING [None]
  - INJECTION SITE PRURITUS [None]
  - INJECTION SITE RASH [None]
  - NAUSEA [None]
  - WEIGHT DECREASED [None]
